FAERS Safety Report 7517434-9 (Version None)
Quarter: 2011Q2

REPORT INFORMATION
  Report Type: 
  Country: None (occurrence: None)
  Receive Date: 20110601
  Receipt Date: 20110525
  Transmission Date: 20111010
  Serious: Yes (Other)
  Sender: FDA-Public Use
  Company Number: US-PFIZER INC-2011114211

PATIENT
  Sex: Female
  Weight: 52.154 kg

DRUGS (8)
  1. ZOLOFT [Suspect]
     Dosage: 25 MG, UNK
  2. ASMANEX TWISTHALER [Concomitant]
     Indication: ASTHMA
     Dosage: 220 UG, 1X/DAY
  3. ASTHALIN [Concomitant]
     Indication: HYPERSENSITIVITY
     Dosage: UNK
     Route: 055
  4. ZOLOFT [Suspect]
     Dosage: 50 MG, UNK
  5. ZOLOFT [Suspect]
     Indication: MENOPAUSE
     Dosage: UNK
     Route: 048
     Dates: start: 20100101
  6. OMNARIS [Concomitant]
     Indication: HYPERSENSITIVITY
     Dosage: 50 UG, AS NEEDED
  7. XYZAL [Concomitant]
     Indication: HYPERSENSITIVITY
     Dosage: 10 MG, 1X/DAY
  8. OMNARIS [Concomitant]
     Indication: SINUS DISORDER

REACTIONS (6)
  - ANXIETY [None]
  - DISTURBANCE IN ATTENTION [None]
  - EMOTIONAL DISORDER [None]
  - MIGRAINE [None]
  - PARAESTHESIA [None]
  - FEELING ABNORMAL [None]
